FAERS Safety Report 20670293 (Version 1)
Quarter: 2022Q2

REPORT INFORMATION
  Report Type: Spontaneous
  Country: NL (occurrence: NL)
  Receive Date: 20220404
  Receipt Date: 20220404
  Transmission Date: 20220721
  Serious: Yes (Hospitalization)
  Sender: FDA-Public Use
  Company Number: None

PATIENT
  Age: 81 Year
  Sex: Female
  Weight: 69 kg

DRUGS (10)
  1. CLINDAMYCIN [Suspect]
     Active Substance: CLINDAMYCIN
     Indication: Dental implantation
     Dosage: 600 MILLIGRAM, Q8H (3X PER DAY 2 PIECES)
     Dates: start: 20220121, end: 20220128
  2. CLINDAMYCIN [Suspect]
     Active Substance: CLINDAMYCIN
     Indication: Prophylaxis
  3. ZOPICLONE [Concomitant]
     Active Substance: ZOPICLONE
     Dosage: 7.5 MILLIGRAM (TABLET, 7,5 MG (MILLIGRAM))
  4. CALCIUM CARBONATE\CHOLECALCIFEROL [Concomitant]
     Active Substance: CALCIUM CARBONATE\CHOLECALCIFEROL
     Dosage: UNK (SACHET (EFFERVESCENT GRANULES), 1.25 G (GRAMS)/440 UNITS)
  5. CICLESONIDE [Concomitant]
     Active Substance: CICLESONIDE
     Dosage: 160 MICROGRAM (AEROSOL, 160 ?G/DOSE (MICROGRAMS PER DOSE))
  6. AZATHIOPRINE [Concomitant]
     Active Substance: AZATHIOPRINE
     Dosage: 25 MILLIGRAM (TABLET, 25 MG (MILLIGRAM))
  7. POLYETHYLENE GLYCOLS [Concomitant]
     Active Substance: POLYETHYLENE GLYCOLS
     Dosage: UNK (POWDER FOR DRINK)
  8. AMITRIPTYLINE [Concomitant]
     Active Substance: AMITRIPTYLINE
     Dosage: 25 MILLIGRAM (TABLET, 25 MG (MILLIGRAM))
  9. PANTOPRAZOLE SODIUM [Concomitant]
     Active Substance: PANTOPRAZOLE SODIUM
     Dosage: 20 MILLIGRAM (MAAGSAPRESISTENTE TABLET, 20 MG (MILLIGRAM))
  10. SOLIFENACIN [Concomitant]
     Active Substance: SOLIFENACIN
     Dosage: 10 MILLIGRAM (TABLET, 10 MG (MILLIGRAM))

REACTIONS (6)
  - Confusional state [Recovered/Resolved]
  - Pyrexia [Recovered/Resolved]
  - Face oedema [Recovered/Resolved]
  - Drug reaction with eosinophilia and systemic symptoms [Recovered/Resolved]
  - Pruritus [Recovered/Resolved]
  - Rash [Recovered/Resolved]

NARRATIVE: CASE EVENT DATE: 20220128
